FAERS Safety Report 12389528 (Version 1)
Quarter: 2016Q2

REPORT INFORMATION
  Report Type: Spontaneous
  Country: US (occurrence: US)
  Receive Date: 20160520
  Receipt Date: 20160520
  Transmission Date: 20160815
  Serious: Yes (Other)
  Sender: FDA-Public Use
  Company Number: US-BAYER-2016-093467

PATIENT
  Age: 55 Year
  Weight: 69 kg

DRUGS (5)
  1. DABIGATRAN [Interacting]
     Active Substance: DABIGATRAN
     Indication: ATRIAL FLUTTER
     Dosage: 150 MG, BID
  2. TACROLIMUS. [Interacting]
     Active Substance: TACROLIMUS
  3. ACETYLSALICYLIC ACID (} 100 MG) [Suspect]
     Active Substance: ASPIRIN
     Dosage: UNK
  4. FLUCONAZOLE. [Interacting]
     Active Substance: FLUCONAZOLE
  5. AMIODARONE [Interacting]
     Active Substance: AMIODARONE

REACTIONS (2)
  - Rectal haemorrhage [None]
  - Drug interaction [None]
